FAERS Safety Report 6011230-X (Version None)
Quarter: 2008Q4

REPORT INFORMATION
  Report Type: 
  Country: None (occurrence: None)
  Receive Date: 20081218
  Receipt Date: 20081215
  Transmission Date: 20090506
  Serious: Yes (Hospitalization)
  Sender: FDA-Public Use
  Company Number: JP-MERCK-0811USA02449

PATIENT
  Age: 73 Year
  Sex: Male

DRUGS (7)
  1. ZETIA [Suspect]
     Indication: HYPERLIPIDAEMIA
     Route: 048
     Dates: start: 20080714, end: 20081110
  2. ZETIA [Suspect]
     Route: 048
     Dates: start: 20080101
  3. ZETIA [Suspect]
     Route: 048
     Dates: start: 20081120
  4. CILNIDIPINE [Concomitant]
     Route: 065
  5. ROSUVASTATIN CALCIUM [Concomitant]
     Route: 065
  6. VOGLIBOSE [Concomitant]
     Route: 065
  7. ALLOPURINOL [Concomitant]
     Route: 065

REACTIONS (1)
  - LIVER DISORDER [None]
